FAERS Safety Report 14293399 (Version 1)
Quarter: 2017Q4

REPORT INFORMATION
  Report Type: Report from Study
  Country: US (occurrence: US)
  Receive Date: 20171215
  Receipt Date: 20171215
  Transmission Date: 20180321
  Serious: Yes (Hospitalization)
  Sender: FDA-Public Use
  Company Number: US-BIOGEN-2017BI00495257

PATIENT
  Age: 45 Year
  Sex: Female

DRUGS (1)
  1. TECFIDERA [Suspect]
     Active Substance: DIMETHYL FUMARATE
     Indication: MULTIPLE SCLEROSIS
     Dosage: MAINTENANCE DOSE
     Route: 048
     Dates: start: 20150901, end: 20171117

REACTIONS (4)
  - Biliary dilatation [Unknown]
  - Lymphadenopathy [Unknown]
  - Underdose [Recovered/Resolved]
  - Hepatosplenomegaly [Unknown]

NARRATIVE: CASE EVENT DATE: 20150901
